FAERS Safety Report 14212062 (Version 7)
Quarter: 2019Q2

REPORT INFORMATION
  Report Type: Report from Study
  Country: US (occurrence: US)
  Receive Date: 20171121
  Receipt Date: 20190602
  Transmission Date: 20190711
  Serious: Yes (Death, Other)
  Sender: FDA-Public Use
  Company Number: US-BRISTOL-MYERS SQUIBB COMPANY-BMS-2017-102268

PATIENT
  Age: 69 Year
  Sex: Male

DRUGS (1)
  1. BELATACEPT [Suspect]
     Active Substance: BELATACEPT
     Indication: IMMUNOSUPPRESSION
     Dosage: 840 MG, UNK
     Route: 042
     Dates: start: 20161012, end: 20171109

REACTIONS (1)
  - Post transplant lymphoproliferative disorder [Fatal]

NARRATIVE: CASE EVENT DATE: 20171108
